FAERS Safety Report 10518161 (Version 1)
Quarter: 2014Q4

REPORT INFORMATION
  Report Type: Spontaneous
  Country: US (occurrence: US)
  Receive Date: 20141015
  Receipt Date: 20141015
  Transmission Date: 20150528
  Serious: No
  Sender: FDA-Public Use
  Company Number: US-BIOGENIDEC-2014BI105719

PATIENT
  Sex: Female

DRUGS (1)
  1. TECFIDERA [Suspect]
     Active Substance: DIMETHYL FUMARATE
     Indication: PRODUCT USED FOR UNKNOWN INDICATION
     Route: 048

REACTIONS (5)
  - Alopecia [Unknown]
  - Gastrointestinal disorder [Unknown]
  - Skin tightness [Unknown]
  - Erythema [Unknown]
  - Burning sensation [Unknown]

NARRATIVE: CASE EVENT DATE: 201401
